FAERS Safety Report 6793410-9 (Version None)
Quarter: 2010Q2

REPORT INFORMATION
  Report Type: 
  Country: None (occurrence: None)
  Receive Date: 20100624
  Receipt Date: 20100301
  Transmission Date: 20101027
  Serious: Yes (Death)
  Sender: FDA-Public Use
  Company Number: US-MYLANLABS-2010S1002659

PATIENT
  Age: 75 Year
  Sex: Male

DRUGS (9)
  1. CLOZAPINE [Suspect]
     Indication: PSYCHOTIC DISORDER
     Route: 048
     Dates: end: 20100101
  2. SINEMET [Concomitant]
     Dosage: 25/100MG X 5 DOSES
     Route: 048
  3. SINEMET [Concomitant]
     Dosage: 50/200MG
     Route: 048
  4. ENTACAPONE [Concomitant]
     Dosage: X 5 DOSES
     Route: 048
  5. ZOLOFT [Concomitant]
     Route: 048
  6. ARICEPT [Concomitant]
     Route: 048
  7. PROVIGIL [Concomitant]
     Route: 048
  8. DETROL LA [Concomitant]
     Route: 048
  9. BACLOFEN [Concomitant]
     Route: 048

REACTIONS (1)
  - SUDDEN DEATH [None]
